FAERS Safety Report 10626124 (Version 4)
Quarter: 2015Q1

REPORT INFORMATION
  Report Type: Spontaneous
  Country: US (occurrence: US)
  Receive Date: 20141204
  Receipt Date: 20150109
  Transmission Date: 20150720
  Serious: Yes (Hospitalization, Disabling, Other)
  Sender: FDA-Public Use
  Company Number: US-009507513-1102USA00333

PATIENT
  Sex: Female
  Weight: 83.46 kg

DRUGS (27)
  1. IRON (UNSPECIFIED) (+) VITAMINS (UNSPECIFIED) [Concomitant]
  2. PRINZIDE [Concomitant]
     Active Substance: HYDROCHLOROTHIAZIDE\LISINOPRIL
     Dosage: 20/12.5
     Route: 048
  3. GASTROINTESTINAL PREPARATIONS (UNSPECIFIED) [Concomitant]
     Active Substance: UNSPECIFIED INGREDIENT
  4. MK-9384 [Concomitant]
     Active Substance: TRAMADOL HYDROCHLORIDE
  5. CALCIUM (UNSPECIFIED) [Concomitant]
     Active Substance: CALCIUM
  6. OMEGA-3 MARINE TRIGLYCERIDES [Concomitant]
     Active Substance: FISH OIL
  7. MK-9278 [Concomitant]
     Active Substance: VITAMINS
     Dosage: 1 DF, QD
     Dates: start: 1998
  8. CALCIUM (UNSPECIFIED) (+) VITAMIN D (UNSPECIFIED) [Concomitant]
     Active Substance: CALCIUM CARBONATE\VITAMIN D
     Dosage: 500 MG, QD
     Dates: start: 1998
  9. PRAVACOL [Concomitant]
     Active Substance: PRAVASTATIN SODIUM
     Dosage: 20-40
  10. MK-0152 [Concomitant]
     Active Substance: HYDROCHLOROTHIAZIDE
     Dosage: 12.5 MG, QD
     Route: 048
  11. ASPIRIN. [Concomitant]
     Active Substance: ASPIRIN
     Dosage: UNK MG, UNK
  12. PRINIVIL [Concomitant]
     Active Substance: LISINOPRIL
  13. VITAMIN D [Concomitant]
     Active Substance: CHOLECALCIFEROL
     Dosage: 1000 U, QD
     Route: 048
  14. FOSAMAX [Suspect]
     Active Substance: ALENDRONATE SODIUM
     Dosage: UNK MG, UNK
     Route: 048
     Dates: start: 200801, end: 2010
  15. VICODIN [Concomitant]
     Active Substance: ACETAMINOPHEN\HYDROCODONE BITARTRATE
     Dosage: 1 PRN
  16. ALBUTEROL. [Concomitant]
     Active Substance: ALBUTEROL
     Dosage: 2 PRN
     Route: 055
  17. FOSAMAX [Suspect]
     Active Substance: ALENDRONATE SODIUM
     Indication: OSTEOPOROSIS
     Dosage: 70 MG, QW
     Route: 048
     Dates: start: 20030111, end: 20080327
  18. OS-CAL + D [Concomitant]
     Dosage: 1 UNK, QD
  19. PAXIL CR [Concomitant]
     Active Substance: PAROXETINE HYDROCHLORIDE
     Dosage: 12.5-25
     Route: 048
     Dates: start: 20030311
  20. LORTAB [Concomitant]
     Active Substance: ACETAMINOPHEN\HYDROCODONE BITARTRATE
  21. FOSAMAX [Suspect]
     Active Substance: ALENDRONATE SODIUM
     Dosage: 70 MG, QW
     Route: 048
     Dates: start: 20060626
  22. ALENDRONATE SODIUM. [Suspect]
     Active Substance: ALENDRONATE SODIUM
     Dosage: 70 MG, UNK
     Dates: start: 20081004
  23. ALENDRONATE SODIUM. [Suspect]
     Active Substance: ALENDRONATE SODIUM
     Indication: OSTEOPOROSIS
     Dosage: 70 MG, UNK
     Route: 048
     Dates: start: 200801, end: 2010
  24. CALCIUM (UNSPECIFIED) (+) VITAMIN D (UNSPECIFIED) [Concomitant]
     Active Substance: CALCIUM CARBONATE\VITAMIN D
     Dosage: 1 MG, QD
     Dates: start: 1998
  25. VIOXX [Concomitant]
     Active Substance: ROFECOXIB
     Dosage: 25 MG, QD
     Route: 048
     Dates: end: 200501
  26. COUMADIN [Concomitant]
     Active Substance: WARFARIN SODIUM
     Dosage: 2-3
  27. KLONOPIN [Concomitant]
     Active Substance: CLONAZEPAM
     Dosage: 1-2

REACTIONS (48)
  - Tachycardia [Unknown]
  - Anxiety [Unknown]
  - Bone loss [Unknown]
  - Hyperlipidaemia [Unknown]
  - Femur fracture [Recovered/Resolved]
  - Stress fracture [Unknown]
  - Joint lock [Unknown]
  - Knee arthroplasty [Unknown]
  - Low turnover osteopathy [Unknown]
  - Osteoarthritis [Unknown]
  - Arthritis [Unknown]
  - Fall [Unknown]
  - Scoliosis [Unknown]
  - Lower limb fracture [Unknown]
  - Laceration [Unknown]
  - Osteoporosis [Unknown]
  - Dehydration [Recovered/Resolved]
  - Myocardial ischaemia [Unknown]
  - Back pain [Unknown]
  - Chest pain [Unknown]
  - Periprosthetic fracture [Recovered/Resolved]
  - Seizure [Unknown]
  - Anaemia postoperative [Recovered/Resolved]
  - Fall [Unknown]
  - Blood thyroid stimulating hormone increased [Unknown]
  - Pain [Unknown]
  - Hypertension [Unknown]
  - Blood potassium decreased [Unknown]
  - Colon adenoma [Unknown]
  - Renal failure [Unknown]
  - Fall [Unknown]
  - Osteoarthritis [Unknown]
  - Muscular weakness [Unknown]
  - Fall [Unknown]
  - Lung disorder [Unknown]
  - Hypokalaemia [Unknown]
  - Femur fracture [Not Recovered/Not Resolved]
  - Fall [Unknown]
  - Radiculopathy [Unknown]
  - Back pain [Unknown]
  - Gastrooesophageal reflux disease [Unknown]
  - Intramedullary rod insertion [Unknown]
  - Radius fracture [Unknown]
  - Lung disorder [Unknown]
  - Blood thyroid stimulating hormone decreased [Unknown]
  - Wrist fracture [Unknown]
  - Abasia [Unknown]
  - Arthralgia [Unknown]

NARRATIVE: CASE EVENT DATE: 20030311
